FAERS Safety Report 4719438-8 (Version None)
Quarter: 2005Q3

REPORT INFORMATION
  Report Type: 
  Country: None (occurrence: None)
  Receive Date: 20050719
  Receipt Date: 20050705
  Transmission Date: 20060218
  Serious: Yes (Hospitalization)
  Sender: FDA-Public Use
  Company Number: 2005100226

PATIENT
  Age: 60 Year
  Sex: Female

DRUGS (5)
  1. CELEBREX [Suspect]
     Indication: BACK PAIN
     Dosage: 200 MG (200 MG, 1 IN 1 D)
     Dates: start: 19990225
  2. GLIPIZIDE [Concomitant]
  3. NORVASC [Concomitant]
  4. LORCET (HYDROCODOONE BITARTRATE, PARACETAMOL) [Concomitant]
  5. PREMARIN [Concomitant]

REACTIONS (5)
  - CORONARY ARTERY STENOSIS [None]
  - DRUG DEPENDENCE [None]
  - MEDICAL DEVICE COMPLICATION [None]
  - MYOCARDIAL INFARCTION [None]
  - MYOCARDIAL ISCHAEMIA [None]
